FAERS Safety Report 7427153-5 (Version None)
Quarter: 2011Q2

REPORT INFORMATION
  Report Type: 
  Country: None (occurrence: None)
  Receive Date: 20110420
  Receipt Date: 20110408
  Transmission Date: 20111010
  Serious: Yes (Hospitalization)
  Sender: FDA-Public Use
  Company Number: FR-PFIZER INC-2010005205

PATIENT
  Age: 70 Year
  Sex: Female

DRUGS (5)
  1. ELVORINE [Suspect]
     Indication: COLORECTAL CANCER METASTATIC
     Dosage: 335 MG
     Route: 042
     Dates: start: 20081216, end: 20090102
  2. FLUOROURACIL [Suspect]
     Dosage: 4 G
     Route: 041
     Dates: start: 20081216, end: 20090102
  3. AVASTIN [Suspect]
     Indication: COLORECTAL CANCER METASTATIC
     Dosage: 325 MG
     Route: 042
     Dates: start: 20081216, end: 20090102
  4. CAMPTOSAR [Suspect]
     Indication: COLORECTAL CANCER METASTATIC
     Dosage: 300 MG
     Route: 042
     Dates: start: 20081216, end: 20090102
  5. FLUOROURACIL [Suspect]
     Indication: COLORECTAL CANCER METASTATIC
     Dosage: 670 MG, UNK
     Route: 042
     Dates: start: 20081216, end: 20090102

REACTIONS (1)
  - FISTULA [None]
